FAERS Safety Report 15335439 (Version 1)
Quarter: 2018Q3

REPORT INFORMATION
  Report Type: Spontaneous
  Country: US (occurrence: US)
  Receive Date: 20180827
  Receipt Date: 20180827
  Transmission Date: 20181010
  Serious: No
  Sender: FDA-Public Use
  Company Number: None

PATIENT
  Age: 60 Year
  Sex: Male

DRUGS (1)
  1. EPCLUSA [Suspect]
     Active Substance: SOFOSBUVIR\VELPATASVIR
     Indication: HEPATITIS C

REACTIONS (5)
  - Sneezing [None]
  - Somnolence [None]
  - Fatigue [None]
  - Frequent bowel movements [None]
  - Flatulence [None]

NARRATIVE: CASE EVENT DATE: 20180824
